FAERS Safety Report 13122468 (Version 1)
Quarter: 2017Q1

REPORT INFORMATION
  Report Type: Spontaneous
  Country: FR (occurrence: FR)
  Receive Date: 20170117
  Receipt Date: 20170117
  Transmission Date: 20170428
  Serious: Yes (Hospitalization)
  Sender: FDA-Public Use
  Company Number: FR-PFIZER INC-2017015201

PATIENT
  Age: 72 Year
  Sex: Male

DRUGS (15)
  1. VINCRISTINE SULFATE. [Suspect]
     Active Substance: VINCRISTINE SULFATE
     Dosage: 1.5 MG, UNK (C2D1)
     Route: 042
     Dates: start: 20161123, end: 20161123
  2. INNOHEP [Concomitant]
     Active Substance: TINZAPARIN SODIUM
  3. DEROXAT [Concomitant]
     Active Substance: PAROXETINE HYDROCHLORIDE
  4. IMOVANE [Concomitant]
     Active Substance: ZOPICLONE
  5. VINCRISTINE SULFATE. [Suspect]
     Active Substance: VINCRISTINE SULFATE
     Indication: DIFFUSE LARGE B-CELL LYMPHOMA
     Dosage: 1.5 MG, UNK (C1D1)
     Route: 042
     Dates: start: 20161027, end: 20161027
  6. METHOTREXATE (METHOTREXATE SODIUM) [Suspect]
     Active Substance: METHOTREXATE SODIUM
     Indication: DIFFUSE LARGE B-CELL LYMPHOMA
     Dosage: 7000 MG, UNK (C1D1)
     Route: 042
     Dates: start: 20161027, end: 20161027
  7. METHOTREXATE (METHOTREXATE SODIUM) [Suspect]
     Active Substance: METHOTREXATE SODIUM
     Dosage: 7000 MG, UNK (C2D1)
     Route: 042
     Dates: start: 20161123, end: 20161123
  8. MABTHERA [Suspect]
     Active Substance: RITUXIMAB
     Indication: DIFFUSE LARGE B-CELL LYMPHOMA
     Dosage: 700 MG, UNK (C1D1)
     Route: 042
     Dates: start: 20161027, end: 20161027
  9. MEDROL [Concomitant]
     Active Substance: METHYLPREDNISOLONE
  10. VINCRISTINE SULFATE. [Suspect]
     Active Substance: VINCRISTINE SULFATE
     Dosage: 1.5 MG, UNK (C1D15)
     Route: 042
     Dates: start: 20161110, end: 20161110
  11. CALCIDOSE VITAMINE D [Concomitant]
     Active Substance: CALCIUM\CHOLECALCIFEROL
     Route: 048
  12. NATULAN [Suspect]
     Active Substance: PROCARBAZINE HYDROCHLORIDE
     Indication: DIFFUSE LARGE B-CELL LYMPHOMA
     Dosage: 200 MG, UNK (C1D1-D7)
     Route: 042
     Dates: start: 20161027, end: 20161102
  13. OFLOCET [Concomitant]
     Active Substance: OFLOXACIN
  14. METHOTREXATE (METHOTREXATE SODIUM) [Suspect]
     Active Substance: METHOTREXATE SODIUM
     Dosage: 7000 MG, UNK (C1D15)
     Route: 042
     Dates: start: 20161110, end: 20161110
  15. SERESTA [Concomitant]
     Active Substance: OXAZEPAM

REACTIONS (1)
  - Hepatocellular injury [Recovered/Resolved]

NARRATIVE: CASE EVENT DATE: 20161102
